FAERS Safety Report 11659235 (Version 1)
Quarter: 2015Q4

REPORT INFORMATION
  Report Type: Spontaneous
  Country: US (occurrence: US)
  Receive Date: 20151026
  Receipt Date: 20151026
  Transmission Date: 20160304
  Serious: Yes (Other)
  Sender: FDA-Public Use
  Company Number: US-ACCORD-034606

PATIENT

DRUGS (1)
  1. AMITRIPTYLINE ACCORD [Suspect]
     Active Substance: AMITRIPTYLINE
     Indication: PRODUCT USED FOR UNKNOWN INDICATION
     Dosage: STRENGTH: 10 MG?RECEIVED FIRST DOSE.??DARK RED TABS MARKED WITH I1.

REACTIONS (3)
  - Anaphylactic reaction [Unknown]
  - Product substitution issue [Unknown]
  - Reaction to drug excipients [Unknown]
